FAERS Safety Report 13783218 (Version 1)
Quarter: 2017Q3

REPORT INFORMATION
  Report Type: Spontaneous
  Country: US (occurrence: US)
  Receive Date: 20170724
  Receipt Date: 20170724
  Transmission Date: 20171127
  Serious: Yes (Other)
  Sender: FDA-Public Use
  Company Number: US-TEVA-790356USA

PATIENT
  Age: 78 Year
  Sex: Male

DRUGS (1)
  1. BACLOFEN. [Suspect]
     Active Substance: BACLOFEN
     Dosage: THRICE A DAY

REACTIONS (3)
  - Mental status changes [Unknown]
  - Somnolence [Unknown]
  - Drug screen false positive [Unknown]
